FAERS Safety Report 9580081 (Version 1)
Quarter: 2013Q3

REPORT INFORMATION
  Report Type: Spontaneous
  Country: US (occurrence: None)
  Receive Date: 20130930
  Receipt Date: 20130930
  Transmission Date: 20140515
  Serious: Yes (Life-Threatening, Hospitalization, Disabling)
  Sender: FDA-Public Use
  Company Number: None

PATIENT
  Age: 38 Year
  Sex: Female

DRUGS (1)
  1. GILDESS FE [Suspect]
     Indication: CONTRACEPTION
     Dosage: 28 DAY REGIMEN
     Route: 048

REACTIONS (2)
  - Product packaging issue [None]
  - Cerebrovascular accident [None]
